FAERS Safety Report 12213272 (Version 1)
Quarter: 2016Q1

REPORT INFORMATION
  Report Type: Spontaneous
  Country: US (occurrence: None)
  Receive Date: 20160325
  Receipt Date: 20160325
  Transmission Date: 20160526
  Serious: Yes (Other)
  Sender: FDA-Public Use
  Company Number: None

PATIENT
  Age: 29 Year
  Sex: Male
  Weight: 70.31 kg

DRUGS (5)
  1. MULTIVITAMIN (1 A DAY FOR MEN) [Concomitant]
  2. AMOX-CLAV 875-125 MG TABLET SAND, 875 MG WAVERLY DRUGS, WAVERLY VA [Suspect]
     Active Substance: AMOXICILLIN\CLAVULANATE POTASSIUM
     Indication: SINUSITIS
     Dosage: 42 TABLET(S) EVERY 12 HOURS TAKEN BY MOUTH
     Route: 048
     Dates: start: 20160309
  3. VITAMIN B12 [Concomitant]
     Active Substance: CYANOCOBALAMIN
  4. COD LIVER OIL [Concomitant]
     Active Substance: COD LIVER OIL
  5. VITAMIN E [Concomitant]
     Active Substance: .ALPHA.-TOCOPHEROL

REACTIONS (4)
  - Headache [None]
  - Back pain [None]
  - Thinking abnormal [None]
  - Suicidal ideation [None]

NARRATIVE: CASE EVENT DATE: 20160314
